FAERS Safety Report 10215447 (Version 2)
Quarter: 2014Q2

REPORT INFORMATION
  Report Type: Spontaneous
  Country: US (occurrence: US)
  Receive Date: 20140604
  Receipt Date: 20140604
  Transmission Date: 20141212
  Serious: Yes (Hospitalization)
  Sender: FDA-Public Use
  Company Number: US-ROCHE-1405694

PATIENT
  Age: 61 Year
  Sex: Female

DRUGS (7)
  1. XOLAIR [Suspect]
     Indication: ASTHMA
     Route: 058
     Dates: start: 201105
  2. XOLAIR [Suspect]
     Route: 058
     Dates: start: 20130916
  3. BYSTOLIC [Concomitant]
     Indication: HYPERTENSION
     Route: 048
  4. LISINOPRIL [Concomitant]
     Indication: HYPERTENSION
     Route: 048
  5. EPINEPHRINE [Concomitant]
     Dosage: 0.2 MG IM
     Route: 065
  6. ALBUTEROL [Concomitant]
     Dosage: UNIT DOSE OF ALBUTEROL X2 VIA NEBULIZER
     Route: 065
  7. DEPOMEDRONE [Concomitant]
     Route: 030

REACTIONS (7)
  - Hypersensitivity [Unknown]
  - Chest discomfort [Unknown]
  - Fatigue [Unknown]
  - Upper-airway cough syndrome [Unknown]
  - Dyspnoea [Unknown]
  - Chest pain [Unknown]
  - Asthenia [Unknown]
